FAERS Safety Report 9426289 (Version 1)
Quarter: 2013Q3

REPORT INFORMATION
  Report Type: Report from Study
  Country: AU (occurrence: AU)
  Receive Date: 20130730
  Receipt Date: 20130730
  Transmission Date: 20140515
  Serious: Yes (Other)
  Sender: FDA-Public Use
  Company Number: PHHY2013AU079651

PATIENT
  Sex: Female

DRUGS (1)
  1. CLOZARIL [Suspect]
     Dosage: 25 MG,
     Dates: start: 20110511, end: 20130626

REACTIONS (1)
  - Psychotic disorder [Unknown]
